FAERS Safety Report 25282772 (Version 1)
Quarter: 2025Q2

REPORT INFORMATION
  Report Type: Spontaneous
  Country: US (occurrence: None)
  Receive Date: 20250507
  Receipt Date: 20250507
  Transmission Date: 20250716
  Serious: Yes (Death, Hospitalization)
  Sender: FDA-CTU
  Company Number: None

PATIENT
  Age: 69 Year
  Sex: Male

DRUGS (1)
  1. LENALIDOMIDE [Suspect]
     Active Substance: LENALIDOMIDE
     Indication: Plasma cell myeloma
     Dosage: FREQUENCY : DAILY;?
     Route: 048
     Dates: start: 20240126, end: 20250312

REACTIONS (8)
  - Diarrhoea [None]
  - Cough [None]
  - Dyspnoea [None]
  - Septic shock [None]
  - Atrial fibrillation [None]
  - Acute kidney injury [None]
  - Hepatic function abnormal [None]
  - Pneumonia [None]

NARRATIVE: CASE EVENT DATE: 20250314
